FAERS Safety Report 9636588 (Version 1)
Quarter: 2013Q4

REPORT INFORMATION
  Report Type: Spontaneous
  Country: TR (occurrence: TR)
  Receive Date: 20131021
  Receipt Date: 20131021
  Transmission Date: 20140711
  Serious: Yes (Other)
  Sender: FDA-Public Use
  Company Number: ALCN2013TR005266

PATIENT
  Sex: 0

DRUGS (1)
  1. ALCAINE [Suspect]
     Indication: EYE PAIN
     Dosage: UNK
     Route: 047

REACTIONS (5)
  - Ulcerative keratitis [Unknown]
  - Hypopyon [Unknown]
  - Corneal epithelium defect [Unknown]
  - Corneal opacity [Unknown]
  - Drug abuse [Unknown]
